FAERS Safety Report 5269772-0 (Version None)
Quarter: 2007Q1

REPORT INFORMATION
  Report Type: 
  Country: None (occurrence: None)
  Receive Date: 20061213
  Receipt Date: 20030818
  Transmission Date: 20070707
  Serious: Yes (Other)
  Sender: FDA-Public Use
  Company Number: 2003UW10417

PATIENT
  Age: 19 Year
  Sex: Male
  Weight: 56.6996 kg

DRUGS (1)
  1. IRESSA [Suspect]
     Indication: SYNOVIAL SARCOMA
     Dosage: 250MG- F GRAM DAILY FOR 2 WEEKS ON AND 2 WEEKS OFF

REACTIONS (2)
  - COUGH [None]
  - PNEUMOTHORAX [None]
